FAERS Safety Report 24331092 (Version 1)
Quarter: 2024Q3

REPORT INFORMATION
  Report Type: Spontaneous
  Country: CN (occurrence: CN)
  Receive Date: 20240918
  Receipt Date: 20240918
  Transmission Date: 20241016
  Serious: Yes (Hospitalization, Other)
  Sender: ABBVIE
  Company Number: CN-ABBVIE-5924093

PATIENT
  Age: 54 Year
  Sex: Female

DRUGS (6)
  1. VENETOCLAX [Suspect]
     Active Substance: VENETOCLAX
     Indication: Chemotherapy
     Dosage: 200 MILLIGRAM, DAY 7
     Route: 048
     Dates: start: 20240713, end: 20240713
  2. VENETOCLAX [Suspect]
     Active Substance: VENETOCLAX
     Indication: Chemotherapy
     Dosage: 400 MILLIGRAM, DAY 8-12
     Route: 048
     Dates: start: 20240714, end: 20240718
  3. VENETOCLAX [Suspect]
     Active Substance: VENETOCLAX
     Indication: Chemotherapy
     Dosage: 100 MILLIGRAM, DAY 6
     Route: 048
     Dates: start: 20240712, end: 20240712
  4. IDARUBICIN HYDROCHLORIDE [Suspect]
     Active Substance: IDARUBICIN HYDROCHLORIDE
     Indication: Chemotherapy
     Dosage: 10 MILLIGRAM,  DAY 1-2
     Route: 041
     Dates: start: 20240706, end: 20240707
  5. IDARUBICIN HYDROCHLORIDE [Suspect]
     Active Substance: IDARUBICIN HYDROCHLORIDE
     Indication: Chemotherapy
     Dosage: 20 MILLIGRAM,  DAY 3-4
     Route: 041
     Dates: start: 20240708, end: 20240709
  6. CYTARABINE HYDROCHLORIDE [Suspect]
     Active Substance: CYTARABINE HYDROCHLORIDE
     Indication: Chemotherapy
     Dosage: 85 MILLIGRAM, DAY 1 TO 7
     Route: 041
     Dates: start: 20240706, end: 20240713

REACTIONS (2)
  - Granulocytopenia [Recovering/Resolving]
  - Neutrophil count decreased [Unknown]

NARRATIVE: CASE EVENT DATE: 20240101
